FAERS Safety Report 8120150 (Version 2)
Quarter: 2013Q1

REPORT INFORMATION
  Report Type: Spontaneous
  Country: VE (occurrence: VE)
  Receive Date: 20110905
  Receipt Date: 20130226
  Transmission Date: 20140127
  Serious: Yes (Hospitalization)
  Sender: FDA-Public Use
  Company Number: PHHY2011VE76834

PATIENT
  Age: 70 Year
  Sex: Female

DRUGS (5)
  1. ACLASTA [Suspect]
     Indication: OSTEOPOROSIS
     Dosage: 5 MG, YEARLY
     Route: 042
     Dates: start: 200912
  2. ACLASTA [Suspect]
     Dosage: 5 MG, YEARLY
     Route: 042
     Dates: start: 201012
  3. LERCADIP [Concomitant]
     Indication: HYPERTENSION
     Dosage: 20 MG
     Dates: start: 20110602
  4. BENICAR [Concomitant]
     Indication: HYPERTENSION
     Dosage: UNK UKN, UNK
     Dates: start: 20110602
  5. NATRILIX [Concomitant]
     Indication: HYPERTENSION
     Dosage: UNK UKN, UNK
     Dates: start: 20110602

REACTIONS (1)
  - Cyst [Recovered/Resolved]
